FAERS Safety Report 22908318 (Version 5)
Quarter: 2024Q1

REPORT INFORMATION
  Report Type: Spontaneous
  Country: PL (occurrence: PL)
  Receive Date: 20230905
  Receipt Date: 20240117
  Transmission Date: 20240410
  Serious: Yes (Death, Hospitalization)
  Sender: FDA-Public Use
  Company Number: PL-Covis Pharma GmbH-2023COV01586

PATIENT
  Age: 79 Year
  Sex: Female
  Weight: 52.9 kg

DRUGS (7)
  1. RILUZOLE [Suspect]
     Active Substance: RILUZOLE
     Indication: Amyotrophic lateral sclerosis
     Route: 048
     Dates: start: 20230330, end: 20230822
  2. ODITRASERTIB [Suspect]
     Active Substance: ODITRASERTIB
     Indication: Amyotrophic lateral sclerosis
     Dosage: 1 DR, BID
     Route: 048
     Dates: start: 20230607
  3. BISOPROLOL [Concomitant]
     Active Substance: BISOPROLOL\BISOPROLOL FUMARATE
     Indication: Hypertension
     Dates: start: 2015
  4. LEVOTHYROXINE SODIUM [Concomitant]
     Active Substance: LEVOTHYROXINE SODIUM
     Indication: Hypothyroidism
     Dates: start: 2013, end: 20230822
  5. PREGABALIN [Concomitant]
     Active Substance: PREGABALIN
     Indication: Spondyloarthropathy
     Dates: start: 20230222, end: 20230822
  6. DULOXETINE [Concomitant]
     Active Substance: DULOXETINE
     Indication: Spondyloarthropathy
     Dates: start: 20230512, end: 20230822
  7. ELIQUIS [Concomitant]
     Active Substance: APIXABAN
     Indication: Atrial fibrillation
     Dates: start: 2019, end: 20230822

REACTIONS (1)
  - Gastrointestinal haemorrhage [Fatal]

NARRATIVE: CASE EVENT DATE: 20230823
